FAERS Safety Report 4794949-8 (Version None)
Quarter: 2005Q4

REPORT INFORMATION
  Report Type: 
  Country: None (occurrence: None)
  Receive Date: 20051006
  Receipt Date: 20050927
  Transmission Date: 20060501
  Serious: Yes (Hospitalization)
  Sender: FDA-Public Use
  Company Number: 2005135160

PATIENT
  Age: 38 Year
  Sex: Female
  Weight: 60 kg

DRUGS (2)
  1. SULFASALAZINE [Suspect]
     Indication: RHEUMATOID ARTHRITIS
     Dosage: 6 DOSE FORMS (1 IN 1 D), ORAL
     Route: 048
     Dates: start: 20031001, end: 20050303
  2. NABUMETONE [Concomitant]

REACTIONS (2)
  - DELIRIUM [None]
  - LOGORRHOEA [None]
